FAERS Safety Report 4733331-6 (Version None)
Quarter: 2005Q3

REPORT INFORMATION
  Report Type: 
  Country: None (occurrence: None)
  Receive Date: 20050801
  Receipt Date: 20050801
  Transmission Date: 20060218
  Serious: Yes (Disabling)
  Sender: FDA-Public Use
  Company Number: None

PATIENT
  Age: 50 Year
  Sex: Female
  Weight: 49.8957 kg

DRUGS (1)
  1. BOTOX [Suspect]

REACTIONS (6)
  - ASTHENIA [None]
  - BALANCE DISORDER [None]
  - HYPOAESTHESIA [None]
  - PARAESTHESIA [None]
  - PAROSMIA [None]
  - SENSORY LOSS [None]
